FAERS Safety Report 5367554-2 (Version None)
Quarter: 2007Q2

REPORT INFORMATION
  Report Type: 
  Country: None (occurrence: None)
  Receive Date: 20070622
  Receipt Date: 20061215
  Transmission Date: 20071010
  Serious: No
  Sender: FDA-Public Use
  Company Number: US-ASTRAZENECA-2006UW28101

PATIENT
  Age: 6 Year
  Sex: Male
  Weight: 64.5 kg

DRUGS (6)
  1. PULMICORT RESPULES [Suspect]
     Indication: ASTHMA
     Route: 055
  2. XOPENEX [Concomitant]
  3. SINGULAIR [Concomitant]
  4. PREDNISONE TAB [Concomitant]
  5. CLARITIN [Concomitant]
  6. ALBUTEROL [Concomitant]

REACTIONS (5)
  - ANXIETY [None]
  - CANDIDIASIS [None]
  - INITIAL INSOMNIA [None]
  - PNEUMONIA [None]
  - RESPIRATORY TRACT INFECTION [None]
